FAERS Safety Report 4919490-0 (Version None)
Quarter: 2006Q1

REPORT INFORMATION
  Report Type: 
  Country: None (occurrence: None)
  Receive Date: 20060216
  Receipt Date: 20060131
  Transmission Date: 20060701
  Serious: Yes (Hospitalization)
  Sender: FDA-Public Use
  Company Number: 221142

PATIENT
  Age: 75 Year
  Sex: Female
  Weight: 58.5 kg

DRUGS (3)
  1. AVASTIN [Suspect]
     Indication: COLON CANCER
     Dosage: 430 MG, Q3W, INTRAVENOUS
     Route: 042
     Dates: start: 20051219, end: 20060109
  2. CAPECITABINE (CAPECITABINE) [Suspect]
     Indication: COLON CANCER
     Dosage: 1500 MG, BID, ORAL
     Route: 048
     Dates: start: 20051229, end: 20060109
  3. OXALIPLATIN (OXALIPLATIN) [Suspect]
     Indication: COLON CANCER
     Dosage: 203 MG, Q3W, INTRAVENOUS
     Route: 042
     Dates: start: 20051219, end: 20060109

REACTIONS (4)
  - CLOSTRIDIAL INFECTION [None]
  - DEEP VEIN THROMBOSIS [None]
  - DEHYDRATION [None]
  - VOMITING [None]
